FAERS Safety Report 9146454 (Version 1)
Quarter: 2013Q1

REPORT INFORMATION
  Report Type: Spontaneous
  Country: US (occurrence: None)
  Receive Date: 20130227
  Receipt Date: 20130227
  Transmission Date: 20140127
  Serious: Yes (Other)
  Sender: FDA-Public Use
  Company Number: None

PATIENT
  Age: 72 Year
  Sex: Male
  Weight: 80.74 kg

DRUGS (1)
  1. AMLODIPINE [Suspect]
     Indication: HYPERTENSION
     Dosage: 5 MG ONE DAILY PO
     Route: 048
     Dates: start: 20130109, end: 20130217

REACTIONS (3)
  - Myalgia [None]
  - Oedema peripheral [None]
  - Oedema peripheral [None]
